FAERS Safety Report 7935648-0 (Version None)
Quarter: 2011Q4

REPORT INFORMATION
  Report Type: 
  Country: None (occurrence: None)
  Receive Date: 20111123
  Receipt Date: 20111110
  Transmission Date: 20120403
  Serious: Yes (Other)
  Sender: FDA-Public Use
  Company Number: CA-ELI_LILLY_AND_COMPANY-CA201111003395

PATIENT
  Sex: Female

DRUGS (4)
  1. HUMALOG [Suspect]
     Indication: DIABETES MELLITUS
     Dosage: 51 U, EACH EVENING
  2. HUMULIN N [Suspect]
     Indication: DIABETES MELLITUS
     Dosage: 28 U, TID
  3. ASPIRIN [Concomitant]
     Dosage: UNK
  4. HUMULIN N [Suspect]
     Dosage: 30 U, TID
     Dates: start: 20111109

REACTIONS (6)
  - ROAD TRAFFIC ACCIDENT [None]
  - ARTHRITIS [None]
  - CARDIAC FAILURE CONGESTIVE [None]
  - BLOOD GLUCOSE INCREASED [None]
  - INCORRECT DOSE ADMINISTERED [None]
  - ARTHROPATHY [None]
